FAERS Safety Report 8919113 (Version 2)
Quarter: 2013Q3

REPORT INFORMATION
  Report Type: Report from Study
  Country: JP (occurrence: JP)
  Receive Date: 20121121
  Receipt Date: 20130708
  Transmission Date: 20140515
  Serious: Yes (Hospitalization)
  Sender: FDA-Public Use
  Company Number: JP-VERTEX PHARMACEUTICAL INC.-AE-2012-003626

PATIENT
  Age: 57 Year
  Sex: Female

DRUGS (64)
  1. VX-950 (TELAPREVIR) [Suspect]
     Indication: CHRONIC HEPATITIS C
     Dosage: 2250 MG, QD
     Route: 048
     Dates: start: 20120126, end: 20120311
  2. VX-950 (TELAPREVIR) [Suspect]
     Dosage: 1500 MG, QD
     Route: 048
     Dates: start: 20120312, end: 20120419
  3. PEGINTRON [Suspect]
     Indication: CHRONIC HEPATITIS C
     Dosage: 1.5 ?G/KG, QW
     Route: 058
     Dates: start: 20120126, end: 20120126
  4. PEGINTRON [Suspect]
     Dosage: 30 ?G, QW
     Route: 058
     Dates: start: 20120202, end: 20120202
  5. PEGINTRON [Suspect]
     Dosage: 50 ?G, QW
     Route: 058
     Dates: start: 20120209, end: 20120209
  6. PEGINTRON [Suspect]
     Dosage: 25?G, QW
     Route: 058
     Dates: start: 20120216, end: 20120308
  7. PEGINTRON [Suspect]
     Dosage: 50 ?G/KG, QW
     Route: 058
     Dates: start: 20120315, end: 20120315
  8. PEGINTRON [Suspect]
     Dosage: 1.5 ?G/KG, QW
     Route: 058
     Dates: start: 20120322, end: 20120419
  9. REBETOL [Suspect]
     Indication: CHRONIC HEPATITIS C
     Dosage: 600 MG, QD
     Route: 048
     Dates: start: 20120126, end: 20120201
  10. REBETOL [Suspect]
     Dosage: 400 MG, QD
     Route: 048
     Dates: start: 20120202, end: 20120307
  11. REBETOL [Suspect]
     Dosage: 200 MG, QD
     Route: 048
     Dates: start: 20120308, end: 20120311
  12. REBETOL [Suspect]
     Dosage: 200 MG, QD
     Route: 048
     Dates: start: 20120316, end: 20120428
  13. REBETOL [Suspect]
     Dosage: 400 MG, QD
     Route: 048
     Dates: start: 20120329, end: 20120427
  14. PREDNISOLONE [Suspect]
     Indication: ADVERSE EVENT
     Dosage: 30 MG, QD
     Route: 048
     Dates: start: 20120308, end: 20120311
  15. PREDNISOLONE [Suspect]
     Indication: RASH
     Dosage: 20 MG, QD
     Route: 048
     Dates: start: 20120312, end: 20120314
  16. PREDNISOLONE [Suspect]
     Dosage: 40 MG, QD
     Route: 048
     Dates: start: 20120315, end: 20120320
  17. PREDNISOLONE [Suspect]
     Dosage: 75 MG, QD
     Route: 048
     Dates: start: 20120321, end: 20120321
  18. PREDNISOLONE [Suspect]
     Dosage: 35 MG, QD
     Route: 048
     Dates: start: 20120322, end: 20120324
  19. PREDNISOLONE [Suspect]
     Dosage: 35 MG, QD
     Route: 048
     Dates: start: 20120326, end: 20120328
  20. PREDNISOLONE [Suspect]
     Dosage: 30 MG, QD
     Route: 048
     Dates: start: 20120329, end: 20120404
  21. PREDNISOLONE [Suspect]
     Dosage: 25 MG, QD
     Route: 048
     Dates: start: 20120405, end: 20120406
  22. PREDNISOLONE [Suspect]
     Dosage: 50 MG, QD
     Route: 048
     Dates: start: 20120407, end: 20120407
  23. PREDNISOLONE [Suspect]
     Dosage: 25 MG, QD
     Route: 048
     Dates: start: 20120408, end: 20120410
  24. PREDNISOLONE [Suspect]
     Dosage: 20 MG, QD
     Route: 048
     Dates: start: 20120412, end: 20120418
  25. PREDNISOLONE [Suspect]
     Dosage: 15 MG, QD
     Route: 048
     Dates: start: 20120419, end: 20120425
  26. PREDNISOLONE [Suspect]
     Dosage: 10 MG, QD
     Route: 048
     Dates: start: 20120426, end: 20120508
  27. PREDNISOLONE [Suspect]
     Dosage: 5 MG, QD
     Route: 048
     Dates: start: 20120509, end: 20120515
  28. PREDNISOLONE [Suspect]
     Dosage: 10 MG, QD
     Route: 048
     Dates: start: 20120516, end: 20120516
  29. PREDNISOLONE [Suspect]
     Dosage: 5 MG, QD
     Route: 048
     Dates: start: 20120517, end: 20120521
  30. PROMAC [Concomitant]
     Dosage: 2 DF, QD
     Route: 048
     Dates: start: 20120613, end: 20120712
  31. TAKEPRON [Concomitant]
     Dosage: 1 UNK, UNK
     Route: 048
     Dates: start: 20120308, end: 20120318
  32. TAKEPRON [Concomitant]
     Dosage: 2 DF, QD
     Route: 048
     Dates: start: 20120319, end: 20120321
  33. TAKEPRON [Concomitant]
     Dosage: 1 DF, QD
     Route: 048
     Dates: start: 20120322, end: 20120328
  34. TAKEPRON [Concomitant]
     Dosage: 2 DF, UNK
     Route: 048
     Dates: start: 20120329, end: 20120401
  35. TAKEPRON [Concomitant]
     Dosage: 1 DF, QD
     Route: 048
     Dates: start: 20120402, end: 20120425
  36. TAKEPRON [Concomitant]
     Dosage: 1 DF, QD
     Route: 048
     Dates: start: 20120427, end: 20120515
  37. TAKEPRON [Concomitant]
     Dosage: 2 DF, QD
     Route: 048
     Dates: start: 20120516, end: 20120516
  38. TAKEPRON [Concomitant]
     Dosage: 1 DF, QD
     Route: 048
     Dates: start: 20120517, end: 20120612
  39. ATARAX P POWDER [Concomitant]
     Dosage: 0.25 G, QD
     Dates: start: 20120308, end: 20120315
  40. ATARAX P POWDER [Concomitant]
     Dosage: 1.5 G, QD
     Route: 065
     Dates: start: 20120419, end: 20120425
  41. MYSLEE [Concomitant]
     Dosage: 5 MG, QD
     Route: 048
     Dates: start: 20120308, end: 20120309
  42. MYSLEE [Concomitant]
     Dosage: 5 MG, QD
     Route: 048
     Dates: start: 20120311, end: 20120404
  43. MYSLEE [Concomitant]
     Dosage: 10 MG, QD
     Route: 048
     Dates: start: 20120405, end: 20120405
  44. MYSLEE [Concomitant]
     Dosage: 5 MG, QD
     Route: 048
     Dates: start: 20120406, end: 20120501
  45. MYSLEE [Concomitant]
     Dosage: 5 MG, UNK
     Route: 048
     Dates: start: 20120505, end: 20120511
  46. AZUNOL [Concomitant]
     Dosage: 5 G, QD
     Route: 061
     Dates: start: 20120320, end: 20120320
  47. EKSALB [Concomitant]
     Dosage: 1 DF, QD
     Route: 051
     Dates: start: 20120324, end: 20120324
  48. RIVOTRIL [Concomitant]
     Dosage: 0.6 G, QD
     Route: 048
     Dates: start: 20120327, end: 20120402
  49. RIVOTRIL [Concomitant]
     Dosage: 0.9 G, QD
     Route: 048
     Dates: start: 20120403, end: 20120411
  50. RIVOTRIL [Concomitant]
     Dosage: 1.8 G, QD
     Route: 048
     Dates: start: 20120412, end: 20120412
  51. RIVOTRIL [Concomitant]
     Dosage: 0.9 G, QD
     Route: 048
     Dates: start: 20120413, end: 20120419
  52. ALMARL [Concomitant]
     Dosage: 10 MG, QD
     Route: 048
     Dates: start: 20120413, end: 20120429
  53. CALONAL [Concomitant]
     Dosage: 2 G, QD
     Route: 048
     Dates: start: 20120419, end: 20120428
  54. LASIX [Concomitant]
     Dosage: 20 MG, QD
     Route: 048
     Dates: start: 20120423, end: 20120516
  55. CYMBALTA [Concomitant]
     Dosage: 20 MG, QD
     Route: 048
     Dates: start: 20120427, end: 20120429
  56. POSTERISAN [Concomitant]
     Dosage: 28 G, QD
     Route: 061
     Dates: start: 20120508, end: 20120508
  57. MAGLAX [Concomitant]
     Dosage: 990 MG, QD
     Route: 048
     Dates: start: 20120508, end: 20120521
  58. HIRUDOID [Concomitant]
     Dosage: 160 G, QD
     Route: 061
     Dates: start: 20120419, end: 20120419
  59. HIRUDOID [Concomitant]
     Dosage: 160 G, QD
     Route: 061
     Dates: start: 20120426, end: 20120426
  60. HIRUDOID [Concomitant]
     Dosage: 100 G, QD
     Route: 061
     Dates: start: 20120509, end: 20120509
  61. HIRUDOID [Concomitant]
     Dosage: 100 G, QD
     Route: 061
     Dates: start: 20120516, end: 20120516
  62. HIRUDOID [Concomitant]
     Dosage: 200 G, QD
     Route: 061
     Dates: start: 20120523, end: 20120523
  63. HIRUDOID [Concomitant]
     Dosage: 400 MG, QD
     Route: 061
     Dates: start: 20120606, end: 20120606
  64. 2% SODIUM BICARBONATE SOLUTION PREPARED IN THE REPORTING HOSPITAL [Concomitant]
     Dosage: 1 DF, QD
     Route: 065
     Dates: start: 20120430, end: 20120430

REACTIONS (2)
  - Toxic skin eruption [Recovered/Resolved]
  - Anxiety disorder [Recovered/Resolved]
